FAERS Safety Report 16362348 (Version 1)
Quarter: 2019Q2

REPORT INFORMATION
  Report Type: Spontaneous
  Country: US (occurrence: US)
  Receive Date: 20190528
  Receipt Date: 20190528
  Transmission Date: 20190711
  Serious: No
  Sender: FDA-Public Use
  Company Number: US-PFIZER INC-2019225503

PATIENT
  Age: 77 Year
  Sex: Female

DRUGS (5)
  1. BACITRACIN. [Suspect]
     Active Substance: BACITRACIN
     Dosage: UNK
  2. BENZALKONIUM CHLORIDE. [Suspect]
     Active Substance: BENZALKONIUM CHLORIDE
     Dosage: UNK
  3. MERTHIOLATE ALCOHOL [Suspect]
     Active Substance: ALCOHOL
     Dosage: UNK
  4. TINCTURE IODINE [ALCOHOL\IODINE\SODIUM IODIDE] [Suspect]
     Active Substance: ALCOHOL\IODINE\SODIUM IODIDE
     Dosage: UNK
  5. TETANUS TOXOID ADSORBED (VACCINE) [Suspect]
     Active Substance: CLOSTRIDIUM TETANI TOXOID ANTIGEN (FORMALDEHYDE INACTIVATED)
     Dosage: UNK

REACTIONS (2)
  - Rash [Unknown]
  - Drug hypersensitivity [Unknown]
